FAERS Safety Report 8693118 (Version 3)
Quarter: 2012Q4

REPORT INFORMATION
  Report Type: 
  Country: US (occurrence: US)
  Receive Date: 20120730
  Receipt Date: 20121004
  Transmission Date: 20130627
  Serious: Yes (Hospitalization, Other)
  Sender: FDA-Public Use
  Company Number: US-ALEXION-A201201395

PATIENT
  Age: 74 Year
  Sex: Female
  Weight: 77.55 kg

DRUGS (27)
  1. SOLIRIS 300MG [Suspect]
     Indication: PAROXYSMAL NOCTURNAL HAEMOGLOBINURIA
     Dosage: 900 mg, q2w
     Route: 042
     Dates: end: 20120425
  2. ALLOPURINOL [Concomitant]
     Dosage: 300 mg, qd
     Route: 048
  3. AMLODIPINE [Concomitant]
     Dosage: 5 mg, qd
     Route: 048
  4. ATENOLOL [Concomitant]
     Dosage: 25 mg, qd
     Route: 048
  5. BRIMONIDINE TARTRATE [Concomitant]
     Dosage: 0.2 %, bid each eye
     Route: 047
  6. FUROSEMIDE [Concomitant]
     Dosage: 40 mg, qd
     Route: 048
  7. GLIPIZIDE ER [Concomitant]
     Dosage: 5 mg, qd
     Route: 048
  8. OMEPRAZOLE [Concomitant]
     Dosage: 20 mg, qd
     Route: 048
  9. POTASSIUM CHLORIDE [Concomitant]
     Dosage: 10 mEq 2 tabs, bid
  10. PREDNISONE [Concomitant]
     Dosage: 1 mg (2 tabs), qd
     Route: 048
  11. SIMVASTATIN [Concomitant]
     Dosage: 20 mg, qd at bedtime
     Route: 048
  12. TIMOLOL [Concomitant]
     Dosage: 0.5 %, bid 1 dropp
     Route: 047
  13. NITROSTAT [Concomitant]
     Indication: CHEST PAIN
     Dosage: 0.4 mg, prn 1 tab Q5minutes up to 3 doses
     Route: 060
  14. NORMAL SALINE [Concomitant]
     Dosage: 0.9% flush as directed Disp syrin
  15. HEPARIN [Concomitant]
     Dosage: 10 unit/mL flush as directed
  16. OXYCODONE [Concomitant]
     Indication: PAIN
     Dosage: 5 mg, prn 1 tab Q4H
     Route: 048
  17. LOPERAMIDE [Concomitant]
     Indication: DIARRHOEA
     Dosage: 2 mg, prn 2 caps QID
     Route: 048
  18. ASPIRIN [Concomitant]
     Dosage: 81 mg, qd
     Route: 048
  19. CALCIUM + VITAMIN D [Concomitant]
     Dosage: 600 mg-200 tab TID
     Route: 048
  20. BENADRYL [Concomitant]
     Dosage: 50 mg, qd at bedtime
     Route: 048
  21. TAB-A-VITE [Concomitant]
     Dosage: 1 tab QD
     Route: 048
  22. ACETAMINOPHEN (MAPAP) [Concomitant]
     Indication: PAIN
     Dosage: 325 mg, prn 2 tabs Q4H
  23. ACETAMINOPHEN (MAPAP) [Concomitant]
     Indication: BODY TEMPERATURE INCREASED
     Dosage: NTE 3-4 GMS
     Route: 048
  24. MILK OF MAGNESIA [Concomitant]
     Indication: CONSTIPATION
     Dosage: 400 mg/5mL give 30 mL QD
     Route: 048
  25. BISACODYL (BISAC-EVAC) [Concomitant]
     Indication: CONSTIPATION
     Dosage: 10 mg, qd suppository
     Route: 054
  26. ENEMA DISPOSABLE [Concomitant]
     Indication: CONSTIPATION
     Dosage: 1 enema QD
     Route: 054
  27. ARANESP [Concomitant]
     Dosage: 300 ?g, q2w hold for HGB greater than (recommend 10)
     Route: 058

REACTIONS (14)
  - Clostridium difficile colitis [Unknown]
  - Colon cancer [Not Recovered/Not Resolved]
  - Gastrointestinal haemorrhage [Unknown]
  - Gastrointestinal inflammation [Unknown]
  - Haemolytic anaemia enzyme specific [Unknown]
  - Obstructive airways disorder [Unknown]
  - Arteriosclerosis coronary artery [Unknown]
  - Essential hypertension [Unknown]
  - Hyperlipidaemia [Unknown]
  - Type 1 diabetes mellitus [Unknown]
  - Congenital spinal cord anomaly [Unknown]
  - Urinary tract infection [Unknown]
  - Haemoglobin decreased [Unknown]
  - Depression [Not Recovered/Not Resolved]
